FAERS Safety Report 14493582 (Version 2)
Quarter: 2018Q2

REPORT INFORMATION
  Report Type: Spontaneous
  Country: US (occurrence: US)
  Receive Date: 20180206
  Receipt Date: 20180405
  Transmission Date: 20180711
  Serious: Yes (Hospitalization)
  Sender: FDA-Public Use
  Company Number: US-ELI_LILLY_AND_COMPANY-US201801011851

PATIENT
  Age: 80 Year
  Sex: Female

DRUGS (8)
  1. DEXAMETHASONE. [Concomitant]
     Active Substance: DEXAMETHASONE
     Dosage: UNK, UNKNOWN
     Route: 065
  2. CYRAMZA [Suspect]
     Active Substance: RAMUCIRUMAB
     Indication: NON-SMALL CELL LUNG CANCER STAGE IV
     Dosage: 1500 MG, CYCLICAL
     Route: 042
     Dates: start: 20171031, end: 20171212
  3. DOCETAXEL. [Concomitant]
     Active Substance: DOCETAXEL
     Dosage: 60 UNK, CYCLICAL
     Route: 042
     Dates: start: 20171031, end: 20171212
  4. NORMAL SALINE [Concomitant]
     Active Substance: SODIUM CHLORIDE
     Dosage: UNK, UNKNOWN
     Route: 042
  5. ONDANSETRON [Concomitant]
     Active Substance: ONDANSETRON
     Dosage: UNK, UNKNOWN
     Route: 065
  6. DOCETAXEL. [Concomitant]
     Active Substance: DOCETAXEL
     Indication: NON-SMALL CELL LUNG CANCER
     Dosage: 80 MG, CYCLICAL
     Route: 042
     Dates: start: 20171031, end: 20171212
  7. DIPHENHYDRAMINE. [Concomitant]
     Active Substance: DIPHENHYDRAMINE
     Dosage: UNK, UNKNOWN
     Route: 065
  8. DOCETAXEL. [Concomitant]
     Active Substance: DOCETAXEL
     Dosage: 62 UNK, CYCLICAL
     Route: 042
     Dates: start: 20171031, end: 20171212

REACTIONS (2)
  - Diarrhoea [Recovering/Resolving]
  - Gastric disorder [Recovering/Resolving]
